FAERS Safety Report 10150583 (Version 1)
Quarter: 2014Q2

REPORT INFORMATION
  Report Type: Spontaneous
  Country: DK (occurrence: DK)
  Receive Date: 20140502
  Receipt Date: 20140502
  Transmission Date: 20141212
  Serious: Yes (Hospitalization)
  Sender: FDA-Public Use
  Company Number: DK-BAYER-2014-062326

PATIENT
  Age: 45 Year
  Sex: Female
  Weight: 50 kg

DRUGS (1)
  1. ULTRAVIST [Suspect]
     Indication: SCAN WITH CONTRAST
     Dosage: 125 ML, UNK
     Route: 042
     Dates: start: 20140129, end: 20140129

REACTIONS (2)
  - Sensation of foreign body [Unknown]
  - Eye swelling [Unknown]
